FAERS Safety Report 23401099 (Version 1)
Quarter: 2024Q1

REPORT INFORMATION
  Report Type: Spontaneous
  Country: ES (occurrence: ES)
  Receive Date: 20240115
  Receipt Date: 20240115
  Transmission Date: 20240410
  Serious: Yes (Life-Threatening, Other)
  Sender: FDA-Public Use
  Company Number: ES-BAXTER-2023BAX031219

PATIENT
  Age: 34 Year
  Sex: Male

DRUGS (28)
  1. CYCLOPHOSPHAMIDE [Suspect]
     Active Substance: CYCLOPHOSPHAMIDE
     Indication: Desmoplastic small round cell tumour
     Dosage: 2100 MG/M2 D1-2 EVERY 3 WEEKS (VDC FIRST-LINE TREATMENT) P6 PROTOCOL (SEVEN CYCLES) ROUTE OF ADMIN (
     Route: 065
     Dates: start: 20180808
  2. CYCLOPHOSPHAMIDE [Suspect]
     Active Substance: CYCLOPHOSPHAMIDE
     Dosage: 25 MG/M2 (D1-28) EVERY 28 DAYS WERE ADMINISTERED AS THE SEVENTH LINE OF TREATMENT
     Route: 048
     Dates: start: 20211228, end: 20220313
  3. CYCLOPHOSPHAMIDE [Suspect]
     Active Substance: CYCLOPHOSPHAMIDE
     Dosage: 250 MG/M2/ DAY, DAYS 1-5, EVERY 3 WEEKS ROUTE OF ADMIN (FREE TEXT): UNKNOWN ROUTE
     Route: 065
     Dates: start: 202103
  4. CYCLOPHOSPHAMIDE [Suspect]
     Active Substance: CYCLOPHOSPHAMIDE
     Dosage: FIVE CYCLES (VDC) ROUTE OF ADMIN (FREE TEXT): UNKNOWN ROUTE
     Route: 065
     Dates: start: 2018
  5. DOXORUBICIN [Suspect]
     Active Substance: DOXORUBICIN
     Dosage: 25 MG/M2 D1-3 (VDC, FIRST-LINE TREATMENT) P6 PROTOCOL (SEVEN CYCLES) ROUTE OF ADMIN (FREE TEXT): UNK
     Route: 065
     Dates: start: 20180808
  6. DOXORUBICIN [Suspect]
     Active Substance: DOXORUBICIN
     Indication: Desmoplastic small round cell tumour
     Dosage: FIVE CYCLES (VDC) ROUTE OF ADMIN (FREE TEXT): UNKNOWN ROUTE
     Route: 065
     Dates: start: 2018
  7. ETOPOSIDE [Suspect]
     Active Substance: ETOPOSIDE
     Indication: Desmoplastic small round cell tumour
     Dosage: 1.8 MG/M2 D1-5 EVERY 3 WEEKS (IE) ROUTE OF ADMIN (FREE TEXT): UNKNOWN ROUTE
     Route: 065
     Dates: start: 201902
  8. ETOPOSIDE [Suspect]
     Active Substance: ETOPOSIDE
     Dosage: P6 PROTOCOL (SEVEN CYCLES) ROUTE OF ADMIN (FREE TEXT): UNKNOWN ROUTE
     Route: 065
     Dates: start: 201808
  9. IRINOTECAN [Suspect]
     Active Substance: IRINOTECAN
     Indication: Desmoplastic small round cell tumour
     Dosage: 20 MG/M2 D1-5 (SECOND LINE) ROUTE OF ADMIN (FREE TEXT): UNKNOWN ROUTE
     Route: 065
     Dates: start: 201904
  10. IFOSFAMIDE [Suspect]
     Active Substance: IFOSFAMIDE
     Dosage: 100 MG/M2 (IE) ROUTE OF ADMIN (FREE TEXT): UNKNOWN ROUTE
     Route: 065
     Dates: start: 201902
  11. IFOSFAMIDE [Suspect]
     Active Substance: IFOSFAMIDE
     Indication: Desmoplastic small round cell tumour
     Dosage: P6 PROTOCOL (SEVEN CYCLES) ROUTE OF ADMIN (FREE TEXT): UNKNOWN ROUTE
     Route: 065
     Dates: start: 201808
  12. TOPOTECAN [Suspect]
     Active Substance: TOPOTECAN HYDROCHLORIDE
     Indication: Desmoplastic small round cell tumour
     Dosage: 0.75 MG/M2/DAY EVERY 3 WEEKS ROUTE OF ADMIN (FREE TEXT): UNKNOWN ROUTE
     Route: 065
     Dates: start: 202103
  13. TEMOZOLOMIDE [Suspect]
     Active Substance: TEMOZOLOMIDE
     Indication: Desmoplastic small round cell tumour
     Dosage: 100 MG/M2 D1-5 EVERY 21 DAYS (SECOND LINE) ROUTE OF ADMIN (FREE TEXT): UNKNOWN ROUTE
     Route: 065
  14. TRABECTEDIN [Suspect]
     Active Substance: TRABECTEDIN
     Indication: Desmoplastic small round cell tumour
     Dosage: 1.5 MG/M2, NINE CYCLES (THIRD LINE) ROUTE OF ADMIN (FREE TEXT): UNKNOWN ROUTE
     Route: 065
     Dates: start: 201907
  15. TRABECTEDIN [Suspect]
     Active Substance: TRABECTEDIN
     Dosage: CONTINUE WITH 4-WEEK INTERVALS ROUTE OF ADMIN (FREE TEXT): UNKNOWN ROUTE
     Route: 065
  16. TRABECTEDIN [Suspect]
     Active Substance: TRABECTEDIN
     Dosage: DOSE REDUCED BY ANOTHER LEVEL TO 1 MG/M2 ROUTE OF ADMIN (FREE TEXT): UNKNOWN ROUTE
     Route: 065
  17. TRABECTEDIN [Suspect]
     Active Substance: TRABECTEDIN
     Dosage: FOR SECOND CYCLE DECREASED ONE LEVEL TO 1.2 MG/M2 ROUTE OF ADMIN (FREE TEXT): UNKNOWN ROUTE
     Route: 065
  18. TRABECTEDIN [Suspect]
     Active Substance: TRABECTEDIN
     Dosage: NINE CYCLES OF TRABECTEDIN UNTIL MARCH 2020 ROUTE OF ADMIN (FREE TEXT): UNKNOWN ROUTE
     Route: 065
  19. VINCRISTINE [Suspect]
     Active Substance: VINCRISTINE
     Indication: Desmoplastic small round cell tumour
     Dosage: 0.67 MG/M2 D1-3 (VDC FIRST-LINE TREATMENT) P6 PROTOCOL (SEVEN CYCLES) ROUTE OF ADMIN (FREE TEXT): UN
     Route: 065
     Dates: start: 20180808
  20. VINCRISTINE [Suspect]
     Active Substance: VINCRISTINE
     Dosage: FIVE CYCLES ROUTE OF ADMIN (FREE TEXT): UNKNOWN ROUTE
     Route: 065
     Dates: start: 2018
  21. DOCETAXEL [Concomitant]
     Active Substance: DOCETAXEL\DOCETAXEL ANHYDROUS
     Indication: Desmoplastic small round cell tumour
     Dosage: 75 MG/M2 DAY 8 EVERY 21 DAYS (SIXTH LINE) ROUTE OF ADMIN (FREE TEXT): UNKNOWN ROUTE
     Route: 065
     Dates: start: 202107
  22. FILGRASTIM [Concomitant]
     Active Substance: FILGRASTIM
     Indication: Product used for unknown indication
     Dosage: RECOMBINANT HUMAN ROUTE OF ADMIN (FREE TEXT): UNKNOWN ROUTE
     Route: 065
  23. GEMCITABINE [Concomitant]
     Active Substance: GEMCITABINE
     Indication: Desmoplastic small round cell tumour
     Dosage: 900 MG/M2 DAYS 1 AND 8 (SIXTH LINE ROUTE OF ADMIN (FREE TEXT): UNKNOWN ROUTE
     Route: 065
     Dates: start: 202107
  24. GRANULOCYTE COLONY-STIMULATING FACTOR NOS [Concomitant]
     Active Substance: GRANULOCYTE COLONY-STIMULATING FACTOR NOS
     Dosage: INCREASED FOR 7 DAYS ROUTE OF ADMIN (FREE TEXT): UNKNOWN ROUTE
     Route: 065
  25. GRANULOCYTE COLONY-STIMULATING FACTOR NOS [Concomitant]
     Active Substance: GRANULOCYTE COLONY-STIMULATING FACTOR NOS
     Indication: Product used for unknown indication
     Dosage: RECOMBINANT HUMAN ROUTE OF ADMIN (FREE TEXT): UNKNOWN ROUTE
     Route: 065
  26. PAZOPANIB [Concomitant]
     Active Substance: PAZOPANIB
     Indication: Desmoplastic small round cell tumour
     Dosage: 800 MG ONCE DAILY ROUTE OF ADMIN (FREE TEXT): UNKNOWN ROUTE
     Route: 065
     Dates: start: 202010
  27. PEGFILGRASTIM [Concomitant]
     Active Substance: PEGFILGRASTIM
     Indication: Desmoplastic small round cell tumour
     Dosage: CONTINUE WITH 4-WEEK INTERVALS ROUTE OF ADMIN (FREE TEXT): UNKNOWN ROUTE
     Route: 065
  28. VINORELBINE [Concomitant]
     Active Substance: VINORELBINE TARTRATE
     Indication: Desmoplastic small round cell tumour
     Dosage: 25 MG/M2 ON DAYS 1 AND 8 ROUTE OF ADMIN (FREE TEXT): UNKNOWN ROUTE
     Route: 065

REACTIONS (4)
  - Thrombocytopenia [Unknown]
  - Febrile neutropenia [Unknown]
  - Haematotoxicity [Unknown]
  - Disease recurrence [Unknown]

NARRATIVE: CASE EVENT DATE: 20180101
